FAERS Safety Report 7956705-9 (Version None)
Quarter: 2011Q4

REPORT INFORMATION
  Report Type: 
  Country: None (occurrence: None)
  Receive Date: 20111205
  Receipt Date: 20111130
  Transmission Date: 20120403
  Serious: Yes (Other)
  Sender: FDA-Public Use
  Company Number: JP-PFIZER INC-2011291626

PATIENT
  Age: 6 Year
  Sex: Female

DRUGS (1)
  1. SUTENT [Suspect]
     Indication: ALVEOLAR SOFT PART SARCOMA
     Dosage: 25 MG, CYCLIC, FOR 28 DAYS/14 DAYS WASH-OUT PERIOD
     Route: 048
     Dates: start: 20110301

REACTIONS (7)
  - YELLOW SKIN [None]
  - EPISTAXIS [None]
  - NEUTROPENIA [None]
  - PLANTAR ERYTHEMA [None]
  - HYPOTHYROIDISM [None]
  - HAEMORRHAGE SUBCUTANEOUS [None]
  - HAIR COLOUR CHANGES [None]
